FAERS Safety Report 12068223 (Version 1)
Quarter: 2016Q1

REPORT INFORMATION
  Report Type: Spontaneous
  Country: US (occurrence: US)
  Receive Date: 20160211
  Receipt Date: 20160211
  Transmission Date: 20160526
  Serious: No
  Sender: FDA-Public Use
  Company Number: US-SMITH AND NEPHEW, INC-2015SMT00444

PATIENT
  Age: 59 Year
  Sex: Female
  Weight: 103.86 kg

DRUGS (11)
  1. LEXAPRO [Concomitant]
     Active Substance: ESCITALOPRAM OXALATE
     Dosage: 10 MG, 1X/DAY
  2. REGRANEX [Suspect]
     Active Substance: BECAPLERMIN
     Dosage: UNK, 1X/DAY
     Route: 061
     Dates: start: 201509
  3. ESTRADIOL. [Concomitant]
     Active Substance: ESTRADIOL
     Dosage: 1 MG, 2X/WEEK
  4. CALCIUM + D 600 [Concomitant]
     Dosage: 600 UNK, 1X/DAY
  5. BUPROPION. [Concomitant]
     Active Substance: BUPROPION
     Dosage: 100 MG, 1X/DAY
  6. GLYBURIDE-METFORMIN 5 MG-500 MG [Concomitant]
     Dosage: UNK, 2X/DAY
  7. REGRANEX [Suspect]
     Active Substance: BECAPLERMIN
     Indication: DIABETIC FOOT
     Dosage: UNK UNK, 1X/DAY
     Route: 061
     Dates: start: 20150910, end: 201509
  8. CLARITIN [Concomitant]
     Active Substance: LORATADINE
     Dosage: 10 MG, 1X/DAY
  9. HUMULIN INSULIN [Concomitant]
     Active Substance: INSULIN HUMAN
     Dosage: UNK, 2X/DAY
  10. LISINOPRIL. [Concomitant]
     Active Substance: LISINOPRIL
     Dosage: 10 MG, 1X/DAY
  11. PROGESTERONE. [Concomitant]
     Active Substance: PROGESTERONE
     Dosage: 2.5 MG, 1X/DAY

REACTIONS (2)
  - Application site erythema [Recovered/Resolved]
  - Incorrect drug administration duration [Unknown]

NARRATIVE: CASE EVENT DATE: 201509
